FAERS Safety Report 5668492-8 (Version None)
Quarter: 2008Q1

REPORT INFORMATION
  Report Type: 
  Country: None (occurrence: None)
  Receive Date: 20080315
  Receipt Date: 20080221
  Transmission Date: 20080703
  Serious: No
  Sender: FDA-Public Use
  Company Number: US-ABBOTT-08P-163-0439487-00

PATIENT
  Sex: Female
  Weight: 113.6 kg

DRUGS (10)
  1. HUMIRA [Suspect]
     Indication: RHEUMATOID ARTHRITIS
     Route: 058
     Dates: start: 20070401, end: 20070901
  2. HUMIRA [Suspect]
     Route: 058
     Dates: start: 20070901
  3. HUMIRA [Suspect]
     Dates: start: 20070401, end: 20070901
  4. METOPROLOL TARTRATE [Concomitant]
     Indication: BLOOD PRESSURE
     Route: 048
  5. ENALAPROIL MALEATE [Concomitant]
     Indication: CARDIAC FAILURE CONGESTIVE
     Route: 048
  6. VENLAFAXINE HCL [Concomitant]
     Indication: DEPRESSION
     Route: 048
  7. HYDROXYCHLOROQUINE SULFATE [Concomitant]
     Indication: CARDIAC FAILURE CONGESTIVE
     Route: 048
  8. APROPOXY [Concomitant]
     Indication: BLOOD PRESSURE
     Route: 048
  9. ATORVASTATIN CALCIUM [Concomitant]
     Indication: BLOOD PRESSURE
     Route: 048
  10. ACETYLSALICYLIC ACID [Concomitant]
     Indication: CARDIOVASCULAR EVENT PROPHYLAXIS
     Route: 048

REACTIONS (5)
  - ARTHRALGIA [None]
  - BACK PAIN [None]
  - MUSCULOSKELETAL PAIN [None]
  - PAIN IN EXTREMITY [None]
  - RASH [None]
